FAERS Safety Report 9498848 (Version 4)
Quarter: 2013Q4

REPORT INFORMATION
  Report Type: Spontaneous
  Country: DE (occurrence: DE)
  Receive Date: 20130904
  Receipt Date: 20131018
  Transmission Date: 20140711
  Serious: Yes (Hospitalization)
  Sender: FDA-Public Use
  Company Number: DE-EISAI INC-E2007-01303-SPO-DE

PATIENT
  Age: 21 Year
  Sex: Female

DRUGS (15)
  1. FYCOMPA (PERAMPANEL) [Suspect]
     Indication: EPILEPSY
     Route: 048
     Dates: start: 20130325, end: 20130407
  2. FYCOMPA (PERAMPANEL) [Suspect]
     Route: 048
     Dates: start: 20130408, end: 20130421
  3. FYCOMPA (PERAMPANEL) [Suspect]
     Route: 048
     Dates: start: 20130422, end: 20130513
  4. FYCOMPA (PERAMPANEL) [Suspect]
     Route: 048
     Dates: start: 20130514, end: 201305
  5. FYCOMPA (PERAMPANEL) [Suspect]
     Route: 048
     Dates: start: 201305, end: 201306
  6. FYCOMPA (PERAMPANEL) [Suspect]
     Route: 048
     Dates: start: 20130617, end: 20130717
  7. FYCOMPA (PERAMPANEL) [Suspect]
     Route: 048
     Dates: start: 20130718
  8. ORFRIL [Concomitant]
     Indication: EPILEPSY
     Dosage: 1500 MG
     Route: 048
     Dates: start: 20130321
  9. PETNIDAN [Concomitant]
     Indication: EPILEPSY
     Dosage: 750 MG
     Route: 048
     Dates: start: 20130321, end: 20130331
  10. PETNIDAN [Concomitant]
     Dosage: 500 MG
     Route: 048
     Dates: start: 20130401, end: 20130408
  11. PETNIDAN [Concomitant]
     Dosage: 250 MG
     Route: 048
     Dates: start: 20130409, end: 20130416
  12. ZONEGRAN [Concomitant]
     Indication: EPILEPSY
     Dosage: 500 MG
     Route: 048
     Dates: start: 20130321
  13. LUMINAL [Concomitant]
     Indication: EPILEPSY
     Dosage: 50 MG
     Route: 048
     Dates: start: 20130531, end: 20130806
  14. LUMINAL [Concomitant]
     Dosage: 50 MG
     Route: 048
     Dates: start: 20130819
  15. ANTRA MUPS [Concomitant]
     Indication: PRODUCT USED FOR UNKNOWN INDICATION
     Dosage: 20 MG
     Route: 048
     Dates: start: 20130321

REACTIONS (4)
  - Self injurious behaviour [Recovering/Resolving]
  - Insomnia [Recovering/Resolving]
  - Restlessness [Recovering/Resolving]
  - Irritability [Recovering/Resolving]
